FAERS Safety Report 8582018-0 (Version None)
Quarter: 2012Q3

REPORT INFORMATION
  Report Type: 
  Country: None (occurrence: None)
  Receive Date: 20120809
  Receipt Date: 20120806
  Transmission Date: 20120928
  Serious: Yes (Other)
  Sender: FDA-Public Use
  Company Number: US-PFIZER INC-2012175209

PATIENT
  Age: 67 Year
  Sex: Female
  Weight: 50.34 kg

DRUGS (7)
  1. LASIX [Concomitant]
     Dosage: 20 MG, AS NEEDED
  2. PLAVIX [Concomitant]
     Indication: ANTICOAGULANT THERAPY
     Dosage: UNK
     Dates: start: 20120101, end: 20120101
  3. AMLODIPINE [Concomitant]
     Indication: BLOOD PRESSURE ABNORMAL
     Dosage: 5 MG, 2X/DAY
  4. GENOTROPIN [Suspect]
     Dosage: 0.8 MG, DAILY
     Dates: end: 20020101
  5. COZAAR [Concomitant]
     Indication: BLOOD PRESSURE ABNORMAL
     Dosage: 100 MG, DAILY
  6. GENOTROPIN [Suspect]
     Indication: HYPOPITUITARISM
     Dosage: UNK
     Dates: start: 20020101
  7. METOPROLOL [Concomitant]
     Indication: BLOOD PRESSURE ABNORMAL
     Dosage: 25 MG, DAILY

REACTIONS (7)
  - GAIT DISTURBANCE [None]
  - ARTHRALGIA [None]
  - BLOOD PRESSURE INCREASED [None]
  - BODY TEMPERATURE INCREASED [None]
  - WEIGHT DECREASED [None]
  - ARTHRITIS [None]
  - BODY HEIGHT DECREASED [None]
